FAERS Safety Report 11196889 (Version 1)
Quarter: 2015Q2

REPORT INFORMATION
  Report Type: Spontaneous
  Country: CA (occurrence: CA)
  Receive Date: 20150617
  Receipt Date: 20150617
  Transmission Date: 20150821
  Serious: Yes (Other)
  Sender: FDA-Public Use
  Company Number: CA-B.I. PHARMACEUTICALS,INC./RIDGEFIELD-2015-BI-31411CN

PATIENT
  Age: 78 Year
  Sex: Male

DRUGS (3)
  1. TOVIAZ [Suspect]
     Active Substance: FESOTERODINE FUMARATE
     Indication: PRODUCT USED FOR UNKNOWN INDICATION
     Dosage: FORMULATION : TABLET, EXTENDED-RELEASE
     Route: 065
  2. LASIX [Concomitant]
     Active Substance: FUROSEMIDE
     Indication: PRODUCT USED FOR UNKNOWN INDICATION
     Route: 065
  3. FLOMAX [Suspect]
     Active Substance: TAMSULOSIN HYDROCHLORIDE
     Indication: PRODUCT USED FOR UNKNOWN INDICATION
     Dosage: FORMULATION : TABLET, EXTENDED-RELEASE
     Route: 065

REACTIONS (8)
  - Dysuria [Unknown]
  - Hypotension [Unknown]
  - Ocular hyperaemia [Unknown]
  - Chest discomfort [Unknown]
  - Eye discharge [Unknown]
  - Malaise [Unknown]
  - Blood pressure increased [Unknown]
  - Penis disorder [Unknown]
